FAERS Safety Report 4492485-X (Version None)
Quarter: 2004Q4

REPORT INFORMATION
  Report Type: 
  Country: None (occurrence: None)
  Receive Date: 20041029
  Receipt Date: 20041021
  Transmission Date: 20050328
  Serious: Yes (Hospitalization)
  Sender: FDA-Public Use
  Company Number: STA-AE-04-MTX-509

PATIENT
  Age: 53 Year
  Sex: Female

DRUGS (25)
  1. RHEUMATREX [Suspect]
     Indication: RHEUMATOID ARTHRITIS
     Dosage: SEE IMAGE
     Route: 048
     Dates: start: 20011003, end: 20031117
  2. RHEUMATREX [Suspect]
     Indication: RHEUMATOID ARTHRITIS
     Dosage: SEE IMAGE
     Route: 048
     Dates: start: 20031118
  3. PREDNISOLONE [Suspect]
     Indication: RHEUMATOID ARTHRITIS
     Dosage: SEE IMAGE
     Route: 048
  4. REMICADE [Suspect]
     Indication: RHEUMATOID ARTHRITIS
     Dosage: 3 MG/KG 1X PER 1 DAY, INTRAVENOUS DRIP
     Route: 042
     Dates: start: 20031103, end: 20031103
  5. REMICADE [Suspect]
     Indication: RHEUMATOID ARTHRITIS
     Dosage: 3 MG/KG 1X PER 1 DAY, INTRAVENOUS DRIP
     Route: 042
     Dates: start: 20031117, end: 20031117
  6. REMICADE [Suspect]
     Indication: RHEUMATOID ARTHRITIS
     Dosage: 3 MG/KG 1X PER 1 DAY, INTRAVENOUS DRIP
     Route: 042
     Dates: start: 20031223, end: 20031223
  7. REMICADE [Suspect]
     Indication: RHEUMATOID ARTHRITIS
     Dosage: 3 MG/KG 1X PER 1 DAY, INTRAVENOUS DRIP
     Route: 042
     Dates: start: 20040218, end: 20040218
  8. REMICADE [Suspect]
     Indication: RHEUMATOID ARTHRITIS
     Dosage: 3 MG/KG 1X PER 1 DAY, INTRAVENOUS DRIP
     Route: 042
     Dates: start: 20040407, end: 20040407
  9. LOXOPROFEN (LOXOPROFEN) [Concomitant]
  10. GASTROM (ECABET MONSODIUM) [Concomitant]
  11. PROMAC (POLAPREZINC) [Concomitant]
  12. LANSOPRAZOLE [Concomitant]
  13. ALFAROL (ALFACALCIDOL) [Concomitant]
  14. ENTERONON (LACTOBACILLUS ACIDOPHILUS) [Concomitant]
  15. MAGNESIUM OXIDE (MAGNESIUM OXIDE) [Concomitant]
  16. PANTOSIN (PANTHETHINE) [Concomitant]
  17. CALCIUM PHOSPHATE DIBASIC (CALCIUM PHOSPHATE DIBASIC) [Concomitant]
  18. TENORMIN [Concomitant]
  19. DIOVAN [Concomitant]
  20. ADOFEED (FLURBIPROFEN) [Concomitant]
  21. GASCON (DIMETICONE) [Concomitant]
  22. LASIX [Concomitant]
  23. ASPARA K (ASPARTATE POTASSIUM) [Concomitant]
  24. ACTONEL [Concomitant]
  25. METHYCOBAL (MECOBALAMIN) [Concomitant]

REACTIONS (2)
  - CLOSTRIDIUM COLITIS [None]
  - GASTROENTERITIS VIRAL [None]
